FAERS Safety Report 7743832-4 (Version None)
Quarter: 2011Q3

REPORT INFORMATION
  Report Type: 
  Country: None (occurrence: None)
  Receive Date: 20110912
  Receipt Date: 20110831
  Transmission Date: 20111222
  Serious: Yes (Other)
  Sender: FDA-Public Use
  Company Number: US-GLAXOSMITHKLINE-A0897031A

PATIENT
  Sex: Female

DRUGS (7)
  1. ELAVIL [Concomitant]
  2. GLUCOPHAGE [Concomitant]
  3. AVANDIA [Suspect]
     Indication: TYPE 2 DIABETES MELLITUS
     Dosage: 8MG PER DAY
     Route: 048
     Dates: start: 19990730, end: 20010101
  4. SYNTHROID [Concomitant]
  5. CARDURA [Concomitant]
  6. HYDROCHLOROTHIAZIDE [Concomitant]
  7. GLUCOTROL XL [Concomitant]

REACTIONS (4)
  - ARRHYTHMIA [None]
  - VENTRICULAR ASYSTOLE [None]
  - ARTERIOSCLEROSIS CORONARY ARTERY [None]
  - HYPERTENSION [None]
